FAERS Safety Report 10929472 (Version 2)
Quarter: 2015Q2

REPORT INFORMATION
  Report Type: Spontaneous
  Country: US (occurrence: US)
  Receive Date: 20150319
  Receipt Date: 20150524
  Transmission Date: 20150821
  Serious: No
  Sender: FDA-Public Use
  Company Number: US-JNJFOC-20140700127

PATIENT
  Sex: Male
  Weight: 72.58 kg

DRUGS (1)
  1. UNSPECIFIED METHYLPHENIDATE HYDROCHLORIDE [Suspect]
     Active Substance: METHYLPHENIDATE HYDROCHLORIDE
     Indication: ATTENTION DEFICIT/HYPERACTIVITY DISORDER
     Route: 048

REACTIONS (3)
  - Aggression [Recovered/Resolved]
  - Drug effect decreased [Recovered/Resolved]
  - Emotional disorder [Recovered/Resolved]
